FAERS Safety Report 5500632-3 (Version None)
Quarter: 2007Q4

REPORT INFORMATION
  Report Type: 
  Country: None (occurrence: None)
  Receive Date: 20071025
  Receipt Date: 20071009
  Transmission Date: 20080405
  Serious: Yes (Death, Other)
  Sender: FDA-Public Use
  Company Number: 2007US002562

PATIENT
  Age: 71 Year
  Sex: Male

DRUGS (4)
  1. PROGRAF [Suspect]
     Indication: HEART TRANSPLANT
     Dosage: ORAL
     Route: 048
  2. MYCOPHENOLATE MOFETIL [Concomitant]
  3. CORTICOSTEROIDS [Concomitant]
  4. PREDNISONE TAB [Concomitant]

REACTIONS (3)
  - CARDIAC FAILURE [None]
  - HAEMODYNAMIC INSTABILITY [None]
  - HEART TRANSPLANT REJECTION [None]
